FAERS Safety Report 7541683-7 (Version None)
Quarter: 2011Q2

REPORT INFORMATION
  Report Type: 
  Country: None (occurrence: None)
  Receive Date: 20110613
  Receipt Date: 20110530
  Transmission Date: 20111010
  Serious: Yes (Other)
  Sender: FDA-Public Use
  Company Number: TW-RANBAXY-2011RR-44945

PATIENT
  Age: 42 Year
  Sex: Female
  Weight: 46 kg

DRUGS (2)
  1. ACETAMINOPHEN [Suspect]
     Dosage: 500 MG, UNK
  2. IBUPROFEN [Suspect]
     Dosage: 400 MG, UNK

REACTIONS (3)
  - DRUG ABUSE [None]
  - MIGRAINE [None]
  - TOXICITY TO VARIOUS AGENTS [None]
